FAERS Safety Report 13228753 (Version 1)
Quarter: 2017Q1

REPORT INFORMATION
  Report Type: Spontaneous
  Country: US (occurrence: US)
  Receive Date: 20170213
  Receipt Date: 20170213
  Transmission Date: 20170428
  Serious: No
  Sender: FDA-Public Use
  Company Number: US-ROCHE-1837532

PATIENT
  Age: 71 Year
  Sex: Female

DRUGS (2)
  1. XOLAIR [Suspect]
     Active Substance: OMALIZUMAB
     Indication: CHRONIC SPONTANEOUS URTICARIA
     Dosage: 2ND INJECTION WAS RECEIVED ON 01/JUN/2016.
     Route: 058
     Dates: end: 20160930
  2. SINGULAIR [Concomitant]
     Active Substance: MONTELUKAST SODIUM

REACTIONS (1)
  - Alopecia [Recovered/Resolved]

NARRATIVE: CASE EVENT DATE: 20160601
